FAERS Safety Report 4754789-2 (Version None)
Quarter: 2005Q3

REPORT INFORMATION
  Report Type: 
  Country: None (occurrence: None)
  Receive Date: 20050826
  Receipt Date: 20050826
  Transmission Date: 20060218
  Serious: Yes (Hospitalization, Other)
  Sender: FDA-Public Use
  Company Number: None

PATIENT
  Sex: Female
  Weight: 59.1 kg

DRUGS (2)
  1. CYTARABINE [Suspect]
     Indication: ACUTE MYELOID LEUKAEMIA
     Dosage: SEE IMAGE
     Dates: start: 20050808
  2. GCSF [Suspect]
     Dosage: SEE IMAGE
     Dates: start: 20050808

REACTIONS (5)
  - BACTERIAL INFECTION [None]
  - BLOOD CULTURE POSITIVE [None]
  - CLOSTRIDIAL INFECTION [None]
  - FEBRILE NEUTROPENIA [None]
  - INFECTION [None]
